FAERS Safety Report 5388436-6 (Version None)
Quarter: 2007Q3

REPORT INFORMATION
  Report Type: 
  Country: None (occurrence: None)
  Receive Date: 20070716
  Receipt Date: 20070705
  Transmission Date: 20080115
  Serious: Yes (Hospitalization)
  Sender: FDA-Public Use
  Company Number: NL-ROCHE-505577

PATIENT
  Age: 76 Year
  Sex: Female
  Weight: 44 kg

DRUGS (4)
  1. CAPECITABINE [Suspect]
     Indication: RECTAL CANCER
     Route: 048
     Dates: start: 20070111, end: 20070214
  2. BEVACIZUMAB [Suspect]
     Indication: RECTAL CANCER
     Dosage: DOSE FORM REPORTED AS INFUSION
     Route: 042
     Dates: start: 20061228, end: 20070208
  3. RADIOTHERAPY MIXTURE [Suspect]
     Indication: RECTAL CANCER
     Dosage: DOSE REPORTED AS 50 GY TOTAL
     Route: 065
     Dates: start: 20070111, end: 20070214
  4. FRAXIPARINE [Concomitant]
     Dates: start: 20070221

REACTIONS (1)
  - FEMALE GENITAL TRACT FISTULA [None]
